FAERS Safety Report 16018855 (Version 1)
Quarter: 2019Q1

REPORT INFORMATION
  Report Type: Spontaneous
  Country: US (occurrence: US)
  Receive Date: 20190228
  Receipt Date: 20190228
  Transmission Date: 20190418
  Serious: No
  Sender: FDA-Public Use
  Company Number: US-SA-2019SA052318

PATIENT
  Age: 34 Year
  Sex: Female

DRUGS (1)
  1. ZANTAC [Suspect]
     Active Substance: RANITIDINE HYDROCHLORIDE
     Indication: EOSINOPHILIC OESOPHAGITIS
     Dosage: 150 MG, QD

REACTIONS (3)
  - Drug screen false positive [Unknown]
  - Prescription drug used without a prescription [Unknown]
  - Off label use [Unknown]
